FAERS Safety Report 6526668-1 (Version None)
Quarter: 2010Q1

REPORT INFORMATION
  Report Type: 
  Country: None (occurrence: None)
  Receive Date: 20100105
  Receipt Date: 20091222
  Transmission Date: 20100710
  Serious: Yes (Other)
  Sender: FDA-Public Use
  Company Number: JP-AMGEN-US383125

PATIENT
  Age: 9 Year
  Sex: Male

DRUGS (4)
  1. ENBREL [Suspect]
     Indication: DRUG USE FOR UNKNOWN INDICATION
     Dosage: UNKNOWN
     Route: 058
  2. RHEUMATREX [Suspect]
  3. PREDNISOLONE [Concomitant]
  4. SALAZOSULFAPYRIDINE [Concomitant]

REACTIONS (1)
  - SARCOIDOSIS [None]
